FAERS Safety Report 6826269-1 (Version None)
Quarter: 2010Q3

REPORT INFORMATION
  Report Type: 
  Country: None (occurrence: None)
  Receive Date: 20100709
  Receipt Date: 20100629
  Transmission Date: 20110219
  Serious: Yes (Other)
  Sender: FDA-Public Use
  Company Number: US-PFIZER INC-2010081292

PATIENT
  Sex: Male
  Weight: 79 kg

DRUGS (5)
  1. SOLU-MEDROL [Suspect]
     Indication: URTICARIA
     Dosage: 125 MG, INJECTION
     Dates: start: 20100628
  2. REMERON [Concomitant]
     Dosage: UNK
     Route: 048
  3. WELLBUTRIN [Concomitant]
     Indication: SLEEP DISORDER
     Dosage: UNK
     Route: 048
  4. TYLENOL [Concomitant]
     Dosage: UNK
  5. BENADRYL [Concomitant]
     Indication: URTICARIA
     Dosage: UNK

REACTIONS (3)
  - PAIN [None]
  - PRESYNCOPE [None]
  - TREMOR [None]
